FAERS Safety Report 5507805-4 (Version None)
Quarter: 2007Q4

REPORT INFORMATION
  Report Type: 
  Country: None (occurrence: None)
  Receive Date: 20071106
  Receipt Date: 20071026
  Transmission Date: 20080405
  Serious: Yes (Other)
  Sender: FDA-Public Use
  Company Number: US-MERCK-0710USA05776

PATIENT
  Age: 52 Year
  Sex: Male

DRUGS (5)
  1. TIMOPTIC [Suspect]
     Indication: GLAUCOMA
     Route: 047
     Dates: start: 19920101
  2. TIMOPTIC [Suspect]
     Route: 047
     Dates: end: 20061001
  3. TOPROL-XL [Concomitant]
     Route: 065
  4. LIPITOR [Concomitant]
     Route: 065
  5. TIMOLOL MALEATE [Suspect]
     Indication: GLAUCOMA
     Route: 047
     Dates: start: 20061001

REACTIONS (4)
  - DIZZINESS [None]
  - HEART RATE DECREASED [None]
  - MYOCARDIAL INFARCTION [None]
  - OVERDOSE [None]
